FAERS Safety Report 6646591-1 (Version None)
Quarter: 2010Q1

REPORT INFORMATION
  Report Type: 
  Country: None (occurrence: None)
  Receive Date: 20100322
  Receipt Date: 20100322
  Transmission Date: 20100710
  Serious: Yes (Life-Threatening, Hospitalization)
  Sender: FDA-Public Use
  Company Number: None

PATIENT
  Age: 75 Year
  Sex: Male
  Weight: 76.7 kg

DRUGS (2)
  1. WARFARIN SODIUM [Suspect]
     Indication: ATRIAL FIBRILLATION
     Dosage: 12 MG EVERY DAY PO
     Route: 048
     Dates: start: 20070525, end: 20100318
  2. MOXIFLOXACIN HCL [Suspect]
     Indication: PNEUMONIA
     Dosage: 400 MG EVERY DAY PO
     Route: 048
     Dates: start: 20100309, end: 20100318

REACTIONS (10)
  - BLOOD ALBUMIN DECREASED [None]
  - EPISTAXIS [None]
  - HAEMATURIA [None]
  - HAEMOPTYSIS [None]
  - HEPATOMEGALY [None]
  - HYPOPHAGIA [None]
  - INTERNATIONAL NORMALISED RATIO INCREASED [None]
  - MALAISE [None]
  - PNEUMONIA [None]
  - TREATMENT NONCOMPLIANCE [None]
